FAERS Safety Report 6683966-9 (Version None)
Quarter: 2010Q2

REPORT INFORMATION
  Report Type: 
  Country: None (occurrence: None)
  Receive Date: 20100416
  Receipt Date: 20100402
  Transmission Date: 20101027
  Serious: Yes (Hospitalization)
  Sender: FDA-Public Use
  Company Number: US-ELI_LILLY_AND_COMPANY-US201004003838

PATIENT
  Sex: Female

DRUGS (3)
  1. FORTEO [Suspect]
     Indication: OSTEOPOROSIS
     Dosage: 20 UG, DAILY (1/D)
     Dates: start: 20090101
  2. MULTI-VITAMIN [Concomitant]
  3. OSCAL D /01746701/ [Concomitant]
     Dates: start: 20090101

REACTIONS (2)
  - BLOOD CALCIUM INCREASED [None]
  - THYROIDECTOMY [None]
